FAERS Safety Report 4505930-8 (Version None)
Quarter: 2004Q4

REPORT INFORMATION
  Report Type: 
  Country: None (occurrence: None)
  Receive Date: 20041025
  Receipt Date: 20040823
  Transmission Date: 20050328
  Serious: Yes (Other)
  Sender: FDA-Public Use
  Company Number: US-JNJFOC-20040401609

PATIENT
  Age: 54 Year
  Sex: Male
  Weight: 91.173 kg

DRUGS (7)
  1. REMICADE [Suspect]
     Indication: RHEUMATOID ARTHRITIS
  2. METHOTREXATE [Suspect]
     Indication: RHEUMATOID ARTHRITIS
     Dosage: 15 MG 1 IN 1 WEEK ORAL
     Route: 048
  3. METHOTREXATE [Concomitant]
  4. ALTACE [Concomitant]
  5. ULTRAM [Concomitant]
  6. ROBAXIN [Concomitant]
  7. FOLIC ACID [Concomitant]

REACTIONS (1)
  - HEPATITIS C [None]
